FAERS Safety Report 9246741 (Version 1)
Quarter: 2013Q2

REPORT INFORMATION
  Report Type: Report from Study
  Country: US (occurrence: US)
  Receive Date: 20130422
  Receipt Date: 20130422
  Transmission Date: 20140414
  Serious: No
  Sender: FDA-Public Use
  Company Number: US-ABBOTT-12P-163-0989063-00

PATIENT
  Age: 10 Year
  Sex: Female
  Weight: 38.59 kg

DRUGS (2)
  1. LUPRON DEPOT-PED [Suspect]
     Indication: PRECOCIOUS PUBERTY
     Route: 030
     Dates: start: 20111231
  2. CHILDREN^S TYLENOL [Concomitant]
     Indication: HEADACHE
     Dosage: 3 TEASPOONS BY MOUTH
     Route: 048

REACTIONS (1)
  - Aggression [Unknown]
